FAERS Safety Report 4884440-2 (Version None)
Quarter: 2006Q1

REPORT INFORMATION
  Report Type: 
  Country: None (occurrence: None)
  Receive Date: 20060119
  Receipt Date: 20051216
  Transmission Date: 20060701
  Serious: Yes (Other)
  Sender: FDA-Public Use
  Company Number: CH-SOLVAY-00305004201

PATIENT
  Age: 31 Year
  Sex: Female

DRUGS (2)
  1. FLUVOXAMINE MALEATE [Suspect]
     Indication: DRUG DEPENDENCE
     Dosage: DAILY DOSE: 50 MILLIGRAM(S);
     Route: 048
  2. METHADONE [Suspect]
     Indication: DRUG DEPENDENCE
     Dosage: DAILY DOSE: 40 MILLIGRAM(S);
     Route: 048

REACTIONS (2)
  - ANAESTHETIC COMPLICATION [None]
  - DRUG EXPOSURE DURING PREGNANCY [None]
